FAERS Safety Report 16978679 (Version 1)
Quarter: 2019Q4

REPORT INFORMATION
  Report Type: Spontaneous
  Country: US (occurrence: US)
  Receive Date: 20191031
  Receipt Date: 20191031
  Transmission Date: 20200122
  Serious: Yes (Other)
  Sender: FDA-Public Use
  Company Number: US-MYLANLABS-2019M1101559

PATIENT
  Age: 65 Year
  Sex: Female

DRUGS (1)
  1. EXEMESTANE TABLETS [Suspect]
     Active Substance: EXEMESTANE
     Indication: ADJUVANT THERAPY
     Dosage: UNK UNK, QD
     Route: 048
     Dates: start: 20180802, end: 20191002

REACTIONS (4)
  - Lupus-like syndrome [Not Recovered/Not Resolved]
  - Raynaud^s phenomenon [Not Recovered/Not Resolved]
  - Rash [Recovered/Resolved]
  - Pruritus [Recovered/Resolved]

NARRATIVE: CASE EVENT DATE: 20180828
